FAERS Safety Report 17161848 (Version 1)
Quarter: 2019Q4

REPORT INFORMATION
  Report Type: Spontaneous
  Country: US (occurrence: US)
  Receive Date: 20191122
  Receipt Date: 20191122
  Transmission Date: 20200122
  Serious: No
  Sender: FDA-Public Use
  Company Number: None

PATIENT
  Sex: Male

DRUGS (1)
  1. BIKTARVY [Suspect]
     Active Substance: BICTEGRAVIR SODIUM\EMTRICITABINE\TENOFOVIR ALAFENAMIDE FUMARATE
     Indication: HIV INFECTION
     Dosage: ?          OTHER STRENGTH:50/200/25M;OTHER DOSE:50-200-25MG;?
     Route: 048
     Dates: start: 201911

REACTIONS (3)
  - Diarrhoea [None]
  - Drug level increased [None]
  - Drug interaction [None]
